FAERS Safety Report 10571997 (Version 1)
Quarter: 2014Q4

REPORT INFORMATION
  Report Type: Spontaneous
  Country: ES (occurrence: ES)
  Receive Date: 20141107
  Receipt Date: 20141107
  Transmission Date: 20150529
  Serious: Yes (Death, Other)
  Sender: FDA-Public Use
  Company Number: PHHY2014ES143166

PATIENT
  Age: 1 Day
  Sex: Female
  Weight: 2.9 kg

DRUGS (1)
  1. DIGOXIN. [Suspect]
     Active Substance: DIGOXIN
     Indication: CARDIAC FAILURE CONGESTIVE
     Route: 065

REACTIONS (7)
  - Aortic dilatation [Fatal]
  - Tricuspid valve incompetence [Unknown]
  - Cardiac failure congestive [Fatal]
  - Aortic valve incompetence [Unknown]
  - Gastroenteritis rotavirus [Fatal]
  - Condition aggravated [Unknown]
  - Mitral valve incompetence [Unknown]
